FAERS Safety Report 6255069-9 (Version None)
Quarter: 2009Q3

REPORT INFORMATION
  Report Type: 
  Country: None (occurrence: None)
  Receive Date: 20090702
  Receipt Date: 20090623
  Transmission Date: 20100115
  Serious: Yes (Death)
  Sender: FDA-Public Use
  Company Number: ZA-PFIZER INC-2009234435

PATIENT

DRUGS (1)
  1. GEODON [Suspect]
     Indication: CONFUSIONAL STATE
     Dosage: UNK
     Dates: start: 20090622

REACTIONS (1)
  - DEATH [None]
